FAERS Safety Report 7134558-9 (Version None)
Quarter: 2010Q4

REPORT INFORMATION
  Report Type: 
  Country: None (occurrence: None)
  Receive Date: 20101203
  Receipt Date: 20101128
  Transmission Date: 20110411
  Serious: Yes (Other)
  Sender: FDA-Public Use
  Company Number: US-PFIZER INC-2010113658

PATIENT
  Sex: Female

DRUGS (3)
  1. ZYVOX [Suspect]
     Indication: SKIN INFECTION
     Dosage: 200 MG, 2X/DAY
  2. PRISTIQ [Suspect]
     Dosage: UNK
  3. SEROQUEL [Suspect]
     Indication: PSYCHOTIC DISORDER
     Dosage: UNK

REACTIONS (4)
  - PAIN [None]
  - PARALYSIS [None]
  - RENAL FAILURE ACUTE [None]
  - SEROTONIN SYNDROME [None]
